FAERS Safety Report 11057204 (Version 1)
Quarter: 2015Q2

REPORT INFORMATION
  Report Type: Report from Study
  Country: MX (occurrence: MX)
  Receive Date: 20150422
  Receipt Date: 20150422
  Transmission Date: 20150821
  Serious: Yes (Other)
  Sender: FDA-Public Use
  Company Number: MX-MYLANLABS-2015M1013360

PATIENT

DRUGS (7)
  1. TRETINOIN. [Suspect]
     Active Substance: TRETINOIN
     Indication: ACUTE PROMYELOCYTIC LEUKAEMIA
     Dosage: 45 MG/M2/DAY FROM DAY 1 UNTIL CR AS INDUCTION
     Route: 065
  2. TRETINOIN. [Suspect]
     Active Substance: TRETINOIN
     Indication: OFF LABEL USE
     Dosage: 45 MG/M2/DAY X 15 IN CONSOLIDATION CYCLES 1, 2, 3
     Route: 065
  3. DAUNORUBICIN [Suspect]
     Active Substance: DAUNORUBICIN
     Dosage: 35 MG/M2/DAY ON DAYS 1-4 OF CONSOLIDATION CYCLE 1
     Route: 065
  4. DEXAMETHASONE. [Concomitant]
     Active Substance: DEXAMETHASONE
     Indication: ACUTE PROMYELOCYTIC LEUKAEMIA
     Dosage: 2.5 MG/M2/12 HOURS X 15 AS INDUCTION
     Route: 065
  5. MITOXANTRONE [Suspect]
     Active Substance: MITOXANTRONE HYDROCHLORIDE
     Indication: ACUTE PROMYELOCYTIC LEUKAEMIA
     Dosage: 10 MG/M2/DAY ON DAYS 1-3 OF CONSOLIDATION CYCLE 2
     Route: 065
  6. DAUNORUBICIN [Suspect]
     Active Substance: DAUNORUBICIN
     Indication: ACUTE PROMYELOCYTIC LEUKAEMIA
     Dosage: 60 MG/M2/DAY ON DAYS 2, 4, 6, 8 OF INDUCTION
     Route: 065
  7. DAUNORUBICIN [Suspect]
     Active Substance: DAUNORUBICIN
     Dosage: 60 MG/M2/DAY ON DAYS 1, 2 OF CONSOLIDATION CYCLE 3
     Route: 065

REACTIONS (2)
  - Febrile neutropenia [Unknown]
  - Headache [Unknown]
